FAERS Safety Report 21310331 (Version 2)
Quarter: 2025Q1

REPORT INFORMATION
  Report Type: Spontaneous
  Country: US (occurrence: US)
  Receive Date: 20220909
  Receipt Date: 20250306
  Transmission Date: 20250409
  Serious: Yes (Other)
  Sender: BECTON DICKINSON
  Company Number: US-BECTON DICKINSON-US-BD-21-000296

PATIENT
  Age: 51 Year
  Sex: Female

DRUGS (1)
  1. CHLORAPREP [Suspect]
     Active Substance: CHLORHEXIDINE GLUCONATE\ISOPROPYL ALCOHOL
     Indication: Infection prophylaxis
     Route: 065
     Dates: start: 20211203

REACTIONS (2)
  - Skin abrasion [Unknown]
  - Product package associated injury [Unknown]

NARRATIVE: CASE EVENT DATE: 20211203
